FAERS Safety Report 5094223-9 (Version None)
Quarter: 2006Q3

REPORT INFORMATION
  Report Type: 
  Country: None (occurrence: None)
  Receive Date: 20060831
  Receipt Date: 20060823
  Transmission Date: 20061208
  Serious: Yes (Hospitalization)
  Sender: FDA-Public Use
  Company Number: FR-BRISTOL-MYERS SQUIBB COMPANY-13487178

PATIENT
  Age: 38 Year
  Sex: Male

DRUGS (6)
  1. AMIKLIN INJ [Suspect]
     Route: 042
     Dates: start: 20060727, end: 20060804
  2. FLAGYL [Suspect]
     Route: 042
     Dates: start: 20060628, end: 20060707
  3. CYMEVAN [Suspect]
     Route: 042
     Dates: start: 20060727, end: 20060729
  4. VFEND [Suspect]
     Route: 042
     Dates: start: 20060727, end: 20060731
  5. TIENAM [Suspect]
     Route: 042
     Dates: start: 20060727, end: 20060804
  6. TRAMADOL HCL [Suspect]
     Route: 048
     Dates: start: 20060728, end: 20060730

REACTIONS (2)
  - RASH MACULO-PAPULAR [None]
  - STEVENS-JOHNSON SYNDROME [None]
